FAERS Safety Report 12818667 (Version 2)
Quarter: 2018Q4

REPORT INFORMATION
  Report Type: Report from Study
  Country: US (occurrence: US)
  Receive Date: 20161006
  Receipt Date: 20181217
  Transmission Date: 20190204
  Serious: Yes (Other)
  Sender: FDA-Public Use
  Company Number: US-ROCHE-1836581

PATIENT
  Age: 59 Year
  Sex: Female
  Weight: 69.6 kg

DRUGS (5)
  1. ABT888 [Suspect]
     Active Substance: VELIPARIB
     Indication: OVARIAN EPITHELIAL CANCER
     Dosage: 14/OCT/2013
     Route: 048
     Dates: start: 20130923
  2. ABT888 [Suspect]
     Active Substance: VELIPARIB
     Route: 048
     Dates: start: 20140106
  3. BEVACIZUMAB. [Suspect]
     Active Substance: BEVACIZUMAB
     Indication: OVARIAN EPITHELIAL CANCER
     Dosage: 14/OCT/2013, 04/NOV/2013, 25/NOV/2013, 16/DEC/2013, 06/JAN/2014, 17/FEB/2014, 10/MAR/2013, 31/MAR/20
     Route: 042
  4. ABT888 [Suspect]
     Active Substance: VELIPARIB
     Route: 048
     Dates: start: 20131125
  5. BEVACIZUMAB. [Suspect]
     Active Substance: BEVACIZUMAB
     Route: 042
     Dates: start: 20140512

REACTIONS (5)
  - Anaemia [Unknown]
  - Fatigue [Unknown]
  - Hypertension [Unknown]
  - Platelet count decreased [Unknown]
  - Neutrophil count decreased [Unknown]
